FAERS Safety Report 25753671 (Version 3)
Quarter: 2025Q4

REPORT INFORMATION
  Report Type: Spontaneous
  Country: US (occurrence: US)
  Receive Date: 20250903
  Receipt Date: 20251112
  Transmission Date: 20260117
  Serious: Yes (Other)
  Sender: PFIZER
  Company Number: US-PFIZER INC-202500173163

PATIENT
  Age: 62 Year
  Sex: Male
  Weight: 78 kg

DRUGS (4)
  1. VELSIPITY [Suspect]
     Active Substance: ETRASIMOD ARGININE
     Indication: Colitis
     Dosage: 2 MG, 1X/DAY
     Route: 048
     Dates: start: 20250821, end: 20250823
  2. PRAVASTATIN [Concomitant]
     Active Substance: PRAVASTATIN
     Dosage: UNK
  3. FENOFIBRATE [Concomitant]
     Active Substance: FENOFIBRATE
     Dosage: UNK
  4. ROWASA [Concomitant]
     Active Substance: MESALAMINE
     Dosage: UNK

REACTIONS (4)
  - Hypertension [Unknown]
  - Heart rate abnormal [Not Recovered/Not Resolved]
  - Heart rate decreased [Unknown]
  - Dizziness [Not Recovered/Not Resolved]

NARRATIVE: CASE EVENT DATE: 20250801
